FAERS Safety Report 4440366-X (Version None)
Quarter: 2004Q3

REPORT INFORMATION
  Report Type: 
  Country: None (occurrence: None)
  Receive Date: 20040728
  Receipt Date: 20040308
  Transmission Date: 20050211
  Serious: No
  Sender: FDA-Public Use
  Company Number: USA040361268

PATIENT
  Age: 38 Year
  Sex: Male
  Weight: 84 kg

DRUGS (4)
  1. SYMBYAX [Suspect]
     Indication: BIPOLAR DISORDER
  2. STRATTERA [Suspect]
     Indication: ATTENTION DEFICIT/HYPERACTIVITY DISORDER
     Dosage: 40 MG DAY
  3. ZYPREXA [Concomitant]
  4. ADDERALL 10 [Concomitant]

REACTIONS (5)
  - COMMUNICATION DISORDER [None]
  - FEELING ABNORMAL [None]
  - SLUGGISHNESS [None]
  - SOMNOLENCE [None]
  - WEIGHT INCREASED [None]
